FAERS Safety Report 7469500-4 (Version None)
Quarter: 2011Q2

REPORT INFORMATION
  Report Type: 
  Country: None (occurrence: None)
  Receive Date: 20110510
  Receipt Date: 20110426
  Transmission Date: 20111010
  Serious: Yes (Hospitalization, Disabling, Other)
  Sender: FDA-Public Use
  Company Number: PHHY2011US15402

PATIENT
  Sex: Female
  Weight: 58.8 kg

DRUGS (13)
  1. PENICILLIN [Concomitant]
  2. NORCO [Concomitant]
     Indication: PAIN
     Dosage: 5/325MG Q4 HRS PRN
     Route: 048
  3. CORTEF [Concomitant]
  4. MESALAMINE [Concomitant]
     Indication: COLITIS ULCERATIVE
     Dosage: 1000MG
     Route: 054
  5. EXJADE [Suspect]
     Indication: SICKLE CELL ANAEMIA
     Dosage: 1500 MG, DAILY
     Route: 048
     Dates: start: 20090923
  6. ASPIRIN [Concomitant]
     Dosage: 81 MG
     Route: 048
  7. EXJADE [Suspect]
     Dosage: 1000 MG DAILY
     Route: 048
  8. FOLIC ACID [Concomitant]
  9. DEPAKOTE [Concomitant]
  10. PROPRANOLOL [Concomitant]
     Dosage: UNK
  11. DILAUDID [Concomitant]
     Indication: PAIN
     Dosage: 8-12MG Q12HRS PRN
     Route: 048
  12. CANASA [Concomitant]
  13. VERAPAMIL [Concomitant]

REACTIONS (6)
  - ADRENOCORTICAL INSUFFICIENCY ACUTE [None]
  - NAUSEA [None]
  - ABDOMINAL PAIN UPPER [None]
  - MIGRAINE [None]
  - ABDOMINAL PAIN [None]
  - ADRENAL INSUFFICIENCY [None]
